FAERS Safety Report 19071482 (Version 1)
Quarter: 2021Q1

REPORT INFORMATION
  Report Type: Spontaneous
  Country: FR (occurrence: FR)
  Receive Date: 20210330
  Receipt Date: 20210330
  Transmission Date: 20210420
  Serious: Yes (Hospitalization)
  Sender: FDA-Public Use
  Company Number: FR-AMGEN-FRASP2020203647

PATIENT
  Age: 47 Year
  Sex: Male
  Weight: 78 kg

DRUGS (5)
  1. FLUOROURACILE ACCORD [Suspect]
     Active Substance: FLUOROURACIL
     Dosage: 775 MILLIGRAM, CYCLICAL
     Route: 041
     Dates: start: 20200828
  2. IRINOTECAN MEDAC [Suspect]
     Active Substance: IRINOTECAN
     Indication: RECTAL CANCER
     Dosage: 370 MILLIGRAM, CYCLICAL
     Route: 041
     Dates: start: 20200828
  3. FLUOROURACILE ACCORD [Suspect]
     Active Substance: FLUOROURACIL
     Indication: RECTAL CANCER
     Dosage: 4800 MILLIGRAM
     Route: 042
     Dates: start: 20200828
  4. VECTIBIX [Suspect]
     Active Substance: PANITUMUMAB
     Indication: RECTAL CANCER
     Dosage: 500 MILLIGRAM, CYCLICAL
     Route: 041
     Dates: start: 20200828, end: 20210103
  5. OXALIPLATINE ACCORD [Suspect]
     Active Substance: OXALIPLATIN
     Indication: RECTAL CANCER
     Dosage: 175 MILLIGRAM
     Route: 041
     Dates: start: 20200828

REACTIONS (7)
  - Dermatitis acneiform [Recovered/Resolved]
  - Diarrhoea [Not Recovered/Not Resolved]
  - Hyperkeratosis [Recovered/Resolved]
  - Asthenia [Not Recovered/Not Resolved]
  - Nausea [Recovered/Resolved]
  - Folliculitis [Recovered/Resolved]
  - Paraesthesia [Not Recovered/Not Resolved]

NARRATIVE: CASE EVENT DATE: 20201007
